FAERS Safety Report 11154658 (Version 1)
Quarter: 2015Q2

REPORT INFORMATION
  Report Type: Report from Study
  Country: CA (occurrence: CA)
  Receive Date: 20150602
  Receipt Date: 20150602
  Transmission Date: 20150821
  Serious: Yes (Death, Hospitalization, Other)
  Sender: FDA-Public Use
  Company Number: CA-ROCHE-1263050

PATIENT
  Age: 6 Year
  Sex: Male
  Weight: 17.8 kg

DRUGS (10)
  1. ACTEMRA [Suspect]
     Active Substance: TOCILIZUMAB
     Route: 042
     Dates: start: 20150429
  2. ACTEMRA [Suspect]
     Active Substance: TOCILIZUMAB
     Route: 042
     Dates: start: 20150318
  3. FOLIC ACID. [Concomitant]
     Active Substance: FOLIC ACID
     Route: 048
  4. ACTEMRA [Suspect]
     Active Substance: TOCILIZUMAB
     Indication: JUVENILE IDIOPATHIC ARTHRITIS
     Route: 042
     Dates: start: 20130808
  5. ACTEMRA [Suspect]
     Active Substance: TOCILIZUMAB
     Route: 042
     Dates: start: 20141126, end: 20150429
  6. ACTEMRA [Suspect]
     Active Substance: TOCILIZUMAB
     Route: 042
     Dates: start: 20150304
  7. ACTEMRA [Suspect]
     Active Substance: TOCILIZUMAB
     Route: 042
     Dates: start: 20150403
  8. PREDNISONE. [Concomitant]
     Active Substance: PREDNISONE
     Dosage: VARIOUS DOSES, DAILY-USED IN THE PAST NOS
     Route: 048
  9. ANAKINRA [Concomitant]
     Active Substance: ANAKINRA
     Route: 058
     Dates: end: 201307
  10. METHOTREXATE [Concomitant]
     Active Substance: METHOTREXATE
     Route: 048

REACTIONS (48)
  - Haemoglobin decreased [Unknown]
  - C-reactive protein increased [Unknown]
  - Blood fibrinogen decreased [Unknown]
  - Monocyte count increased [Unknown]
  - Blood calcium decreased [Unknown]
  - Gastrointestinal disorder [Unknown]
  - Activated partial thromboplastin time prolonged [Unknown]
  - Red blood cell count increased [Unknown]
  - Poor venous access [Unknown]
  - Hyperkalaemia [Unknown]
  - Polymerase chain reaction positive [Unknown]
  - Neutrophil count decreased [Not Recovered/Not Resolved]
  - Red blood cell sedimentation rate increased [Unknown]
  - Haemorrhage [Unknown]
  - Carbon dioxide decreased [Unknown]
  - Blood cholesterol increased [Unknown]
  - Haematocrit increased [Unknown]
  - Haemoglobin increased [Unknown]
  - Sepsis [Fatal]
  - Platelet count decreased [Unknown]
  - Blood pressure inadequately controlled [Unknown]
  - Blood creatine phosphokinase increased [Unknown]
  - International normalised ratio increased [Unknown]
  - Blood magnesium increased [Unknown]
  - White blood cell count increased [Unknown]
  - White blood cell count decreased [Unknown]
  - Neutropenia [Unknown]
  - Hypotension [Unknown]
  - Abdominal rigidity [Unknown]
  - Pleural effusion [Unknown]
  - Musculoskeletal stiffness [Not Recovered/Not Resolved]
  - Blood urea increased [Unknown]
  - Purpura fulminans [Unknown]
  - Red cell distribution width increased [Not Recovered/Not Resolved]
  - Alanine aminotransferase increased [Unknown]
  - Vomiting [Unknown]
  - Arrhythmia [Unknown]
  - Rhabdomyolysis [Unknown]
  - Blood phosphorus increased [Unknown]
  - Neutrophil count increased [Not Recovered/Not Resolved]
  - Cough [Unknown]
  - Otitis media [Unknown]
  - Weight increased [Unknown]
  - Pneumonia [Unknown]
  - Red blood cell count decreased [Unknown]
  - Lymphocyte count decreased [Unknown]
  - Diarrhoea [Unknown]
  - Haematocrit decreased [Unknown]

NARRATIVE: CASE EVENT DATE: 20140812
